FAERS Safety Report 5141339-4 (Version None)
Quarter: 2006Q4

REPORT INFORMATION
  Report Type: 
  Country: None (occurrence: None)
  Receive Date: 20061101
  Receipt Date: 20061020
  Transmission Date: 20070319
  Serious: Yes (Hospitalization, Congenital Anomaly)
  Sender: FDA-Public Use
  Company Number: FR-ROCHE-468232

PATIENT
  Sex: Female
  Weight: 2.4 kg

DRUGS (3)
  1. RIVOTRIL [Suspect]
     Indication: EPILEPSY
  2. EPITOMAX [Suspect]
     Indication: EPILEPSY
  3. LAMICTAL [Suspect]
     Indication: EPILEPSY

REACTIONS (5)
  - ATRIAL SEPTAL DEFECT [None]
  - DRUG EXPOSURE DURING PREGNANCY [None]
  - POOR WEIGHT GAIN NEONATAL [None]
  - SKULL MALFORMATION [None]
  - VENTRICULAR SEPTAL DEFECT [None]
